FAERS Safety Report 20104746 (Version 1)
Quarter: 2021Q4

REPORT INFORMATION
  Report Type: Spontaneous
  Country: GB (occurrence: GB)
  Receive Date: 20211123
  Receipt Date: 20211123
  Transmission Date: 20220303
  Serious: Yes (Other)
  Sender: FDA-Public Use
  Company Number: GB-MHRA-EYC 00263923

PATIENT
  Age: 9 Year
  Weight: 30 kg

DRUGS (1)
  1. CLARITHROMYCIN [Suspect]
     Active Substance: CLARITHROMYCIN
     Indication: Lymphadenopathy
     Dosage: 250 MILLIGRAM, DAILY, FOR 7 DAYS. 250MG/5ML
     Route: 048
     Dates: start: 20211007, end: 20211008

REACTIONS (1)
  - Lip swelling [Recovered/Resolved]

NARRATIVE: CASE EVENT DATE: 20211008
